FAERS Safety Report 5662374-3 (Version None)
Quarter: 2008Q1

REPORT INFORMATION
  Report Type: 
  Country: None (occurrence: None)
  Receive Date: 20080310
  Receipt Date: 20080229
  Transmission Date: 20080703
  Serious: Yes (Other)
  Sender: FDA-Public Use
  Company Number: JPI-P-003117

PATIENT
  Sex: Female
  Weight: 66.2252 kg

DRUGS (17)
  1. XYREM [Suspect]
     Indication: CATAPLEXY
     Dosage: ORAL : 3 GM (3 GM,1 IN 1 D), ORAL : 4 GM (4 GM,1 IN 1 D), ORAL
     Route: 048
     Dates: start: 20080126, end: 20080101
  2. XYREM [Suspect]
     Indication: NARCOLEPSY
     Dosage: ORAL : 3 GM (3 GM,1 IN 1 D), ORAL : 4 GM (4 GM,1 IN 1 D), ORAL
     Route: 048
     Dates: start: 20080126, end: 20080101
  3. XYREM [Suspect]
     Indication: CATAPLEXY
     Dosage: ORAL : 3 GM (3 GM,1 IN 1 D), ORAL : 4 GM (4 GM,1 IN 1 D), ORAL
     Route: 048
     Dates: start: 20080101
  4. XYREM [Suspect]
     Indication: NARCOLEPSY
     Dosage: ORAL : 3 GM (3 GM,1 IN 1 D), ORAL : 4 GM (4 GM,1 IN 1 D), ORAL
     Route: 048
     Dates: start: 20080101
  5. PREDNISONE TAB [Concomitant]
  6. METHADONE HCL [Concomitant]
  7. CLONAZEPAM [Concomitant]
  8. VENLAFAXINE HCL [Concomitant]
  9. GABAPENTIN [Concomitant]
  10. AMPHETAMINE SALTS (AMFETAMINE SULFATE) [Concomitant]
  11. PILOCARPINE HYDROCHLORIDE [Concomitant]
  12. ACETAZOLAMIDE [Concomitant]
  13. DIPOTASSIUM CHLORAZEPATE (CLORAZEPATE DIPOTASSIUM) [Concomitant]
  14. HYDROXYCHLOROQUINE SULFATE [Concomitant]
  15. AZATHIOPRINE [Concomitant]
  16. FLUTICASONE PROPIONATE [Concomitant]
  17. VITAMIN D [Concomitant]

REACTIONS (9)
  - ABNORMAL BEHAVIOUR [None]
  - BALANCE DISORDER [None]
  - COGNITIVE DISORDER [None]
  - DEPRESSED LEVEL OF CONSCIOUSNESS [None]
  - DYSKINESIA [None]
  - DYSPNOEA [None]
  - MOANING [None]
  - SEPTIC SHOCK [None]
  - SOMNAMBULISM [None]
